FAERS Safety Report 6891388-0 (Version None)
Quarter: 2010Q3

REPORT INFORMATION
  Report Type: 
  Country: None (occurrence: None)
  Receive Date: 20100731
  Receipt Date: 20060620
  Transmission Date: 20110219
  Serious: Yes (Other)
  Sender: FDA-Public Use
  Company Number: US-PFIZER INC-2006077994

PATIENT
  Sex: Female

DRUGS (3)
  1. DEPO-MEDROL [Suspect]
     Indication: ARTHRALGIA
     Dosage: 20-25 MG
     Route: 008
     Dates: start: 20030703
  2. TRIAMCINOLONE [Suspect]
     Indication: ARTHRALGIA
     Route: 008
     Dates: start: 20030528
  3. CORTICOSTEROIDS [Suspect]
     Indication: ARTHRALGIA
     Route: 065
     Dates: start: 20030318

REACTIONS (1)
  - CUSHING'S SYNDROME [None]
